FAERS Safety Report 7530426-9 (Version None)
Quarter: 2011Q2

REPORT INFORMATION
  Report Type: 
  Country: None (occurrence: None)
  Receive Date: 20110607
  Receipt Date: 20110523
  Transmission Date: 20111010
  Serious: Yes (Hospitalization, Other)
  Sender: FDA-Public Use
  Company Number: JP-BAYER-200812364BYL

PATIENT
  Age: 60 Year
  Sex: Male
  Weight: 69 kg

DRUGS (12)
  1. MOBIC [Concomitant]
     Dosage: 10 MG (DAILY DOSE), , ORAL
     Route: 048
     Dates: start: 20080820
  2. ALLOPURINOL [Concomitant]
     Dosage: 100 MG (DAILY DOSE), , ORAL
     Route: 048
     Dates: start: 20081209
  3. ADALAT CC [Concomitant]
     Dosage: 20 MG (DAILY DOSE), , ORAL
     Route: 048
     Dates: start: 20080820, end: 20080922
  4. TENORMIN [Concomitant]
     Dosage: 50 MG (DAILY DOSE), , ORAL
     Route: 048
     Dates: start: 20080820
  5. DIOVAN [Concomitant]
     Dosage: 80 MG (DAILY DOSE), , ORAL
     Route: 048
     Dates: start: 20080820, end: 20081111
  6. DIOVAN [Concomitant]
     Dosage: 160 MG (DAILY DOSE), , ORAL
     Route: 048
     Dates: start: 20081112
  7. MEILAX [Concomitant]
     Dosage: 2 MG (DAILY DOSE), , ORAL
     Route: 048
     Dates: start: 20080820
  8. NEXAVAR [Suspect]
     Dosage: 400 MG (DAILY DOSE), , ORAL
     Route: 048
     Dates: start: 20090331
  9. CLARITHROMYCIN [Suspect]
     Route: 048
  10. ADALAT CC [Concomitant]
     Dosage: 40 MG (DAILY DOSE), , ORAL
     Route: 048
     Dates: start: 20080923
  11. NEXAVAR [Suspect]
     Indication: RENAL CELL CARCINOMA
     Dosage: 800 MG (DAILY DOSE), , ORAL
     Route: 048
     Dates: start: 20080820, end: 20080922
  12. NEXAVAR [Suspect]
     Dosage: 400 MG (DAILY DOSE), , ORAL
     Route: 048
     Dates: start: 20081028, end: 20090203

REACTIONS (12)
  - TOXIC SKIN ERUPTION [None]
  - PANCREATITIS ACUTE [None]
  - ABDOMINAL PAIN [None]
  - PLATELET COUNT DECREASED [None]
  - PROTEINURIA [None]
  - PALMAR-PLANTAR ERYTHRODYSAESTHESIA SYNDROME [None]
  - HYPERTENSION [None]
  - OROPHARYNGEAL PAIN [None]
  - HEPATIC FUNCTION ABNORMAL [None]
  - DIARRHOEA [None]
  - DECREASED APPETITE [None]
  - PYREXIA [None]
